FAERS Safety Report 23820265 (Version 1)
Quarter: 2024Q2

REPORT INFORMATION
  Report Type: Spontaneous
  Country: GB (occurrence: GB)
  Receive Date: 20240506
  Receipt Date: 20240506
  Transmission Date: 20240716
  Serious: Yes (Hospitalization, Other)
  Sender: FDA-Public Use
  Company Number: GB-PFIZER INC-PV202400057929

PATIENT
  Age: 77 Year
  Sex: Female

DRUGS (1)
  1. IBRANCE [Suspect]
     Active Substance: PALBOCICLIB
     Indication: Breast cancer
     Dosage: ONCE DAILY, 21 DAYS
     Route: 048

REACTIONS (2)
  - Myocardial infarction [Unknown]
  - Confusional state [Unknown]

NARRATIVE: CASE EVENT DATE: 20240316
